FAERS Safety Report 24547640 (Version 1)
Quarter: 2024Q4

REPORT INFORMATION
  Report Type: Spontaneous
  Country: CN (occurrence: CN)
  Receive Date: 20241025
  Receipt Date: 20241025
  Transmission Date: 20250115
  Serious: Yes (Other)
  Sender: BEIGENE
  Company Number: CN-BEIGENE-BGN-2024-016642

PATIENT

DRUGS (12)
  1. TISLELIZUMAB [Suspect]
     Active Substance: TISLELIZUMAB
     Indication: Oesophageal carcinoma
     Dosage: 200 MILLIGRAM
     Route: 041
     Dates: start: 20240703
  2. TISLELIZUMAB [Suspect]
     Active Substance: TISLELIZUMAB
     Dosage: 200 MILLIGRAM
     Route: 041
     Dates: start: 20240814
  3. TISLELIZUMAB [Suspect]
     Active Substance: TISLELIZUMAB
     Dosage: 200 MILLIGRAM
     Route: 041
     Dates: start: 20240907
  4. TISLELIZUMAB [Suspect]
     Active Substance: TISLELIZUMAB
     Dosage: 200 MILLIGRAM
     Route: 041
     Dates: start: 20241008
  5. LOBAPLATIN [Suspect]
     Active Substance: LOBAPLATIN
     Indication: Oesophageal carcinoma
     Dosage: 40 MILLIGRAM
     Route: 041
     Dates: start: 20240703
  6. LOBAPLATIN [Suspect]
     Active Substance: LOBAPLATIN
     Dosage: 40 MILLIGRAM
     Route: 041
     Dates: start: 20240814
  7. LOBAPLATIN [Suspect]
     Active Substance: LOBAPLATIN
     Dosage: 30 MILLIGRAM
     Route: 041
     Dates: start: 20240907
  8. LOBAPLATIN [Suspect]
     Active Substance: LOBAPLATIN
     Dosage: 30 MILLIGRAM
     Route: 041
     Dates: start: 20241008
  9. PACLITAXEL [Suspect]
     Active Substance: PACLITAXEL
     Indication: Oesophageal carcinoma
     Dosage: 400 MILLIGRAM
     Route: 041
     Dates: start: 20240703
  10. PACLITAXEL [Suspect]
     Active Substance: PACLITAXEL
     Dosage: 400 MILLIGRAM
     Route: 041
     Dates: start: 20240814
  11. PACLITAXEL [Suspect]
     Active Substance: PACLITAXEL
     Dosage: 300 MILLIGRAM
     Route: 041
     Dates: start: 20240907
  12. PACLITAXEL [Suspect]
     Active Substance: PACLITAXEL
     Dosage: 300 MILLIGRAM
     Route: 041
     Dates: start: 20241008

REACTIONS (1)
  - Myelosuppression [Unknown]

NARRATIVE: CASE EVENT DATE: 20241008
